FAERS Safety Report 6300421-6 (Version None)
Quarter: 2009Q3

REPORT INFORMATION
  Report Type: 
  Country: None (occurrence: None)
  Receive Date: 20090806
  Receipt Date: 20080903
  Transmission Date: 20100115
  Serious: No
  Sender: FDA-Public Use
  Company Number: US-ABBOTT-08P-163-0474109-00

PATIENT
  Sex: Female

DRUGS (1)
  1. DEPAKOTE ER [Suspect]
     Indication: DRUG USE FOR UNKNOWN INDICATION
     Dosage: 500MG X2 TABLETS AT HS
     Route: 048
     Dates: start: 20071008

REACTIONS (1)
  - ALOPECIA [None]
